FAERS Safety Report 6709252-6 (Version None)
Quarter: 2010Q2

REPORT INFORMATION
  Report Type: 
  Country: None (occurrence: None)
  Receive Date: 20100504
  Receipt Date: 20100427
  Transmission Date: 20101027
  Serious: Yes (Other)
  Sender: FDA-Public Use
  Company Number: US-ELI_LILLY_AND_COMPANY-US201004007513

PATIENT
  Age: 67 Year
  Sex: Male

DRUGS (7)
  1. HUMALOG MIX 75/25 [Suspect]
     Indication: DIABETES MELLITUS
     Dosage: 25 U, EACH MORNING
     Dates: start: 20080101
  2. HUMALOG MIX 75/25 [Suspect]
     Dosage: 30 U, OTHER
     Dates: start: 20080101
  3. HUMALOG MIX 75/25 [Suspect]
     Dosage: 30 U, EACH EVENING
     Dates: start: 20080101
  4. HUMALOG MIX 75/25 [Suspect]
  5. HUMULIN N [Suspect]
     Indication: DIABETES MELLITUS
     Dosage: 15 U, EACH EVENING
     Dates: start: 20000101
  6. BYETTA [Concomitant]
     Dosage: 10 U, EACH MORNING
     Dates: start: 20000101
  7. BYETTA [Concomitant]
     Dosage: 14 U, EACH EVENING
     Dates: start: 20000101

REACTIONS (7)
  - BLOOD GLUCOSE INCREASED [None]
  - DRUG DISPENSING ERROR [None]
  - GLYCOSYLATED HAEMOGLOBIN INCREASED [None]
  - INCORRECT DRUG DOSAGE FORM ADMINISTERED [None]
  - INCORRECT PRODUCT STORAGE [None]
  - STENT PLACEMENT [None]
  - WEIGHT DECREASED [None]
